FAERS Safety Report 7478792-7 (Version None)
Quarter: 2011Q2

REPORT INFORMATION
  Report Type: 
  Country: None (occurrence: None)
  Receive Date: 20110513
  Receipt Date: 20110510
  Transmission Date: 20111010
  Serious: Yes (Hospitalization, Other)
  Sender: FDA-Public Use
  Company Number: BR-ABBOTT-09P-020-0607982-00

PATIENT
  Sex: Female
  Weight: 41 kg

DRUGS (10)
  1. SPIRONOLACTONE [Concomitant]
     Indication: CARDIAC DISORDER
     Route: 048
     Dates: start: 20010101
  2. ENALAPRIL [Concomitant]
     Indication: CARDIAC DISORDER
     Route: 048
     Dates: start: 20010101
  3. DIGOXIN [Concomitant]
     Indication: CARDIAC DISORDER
     Dosage: 1/2  - 0.25 MG PER DAY (0.125 MG DAILY)
     Route: 048
  4. RALOXIFENE HCL [Concomitant]
     Indication: OSTEOPOROSIS
     Route: 048
     Dates: start: 20050101
  5. CARVEDILOL [Concomitant]
     Indication: CARDIAC DISORDER
     Route: 048
     Dates: start: 20010101
  6. FUROSEMIDE [Concomitant]
     Indication: FLUID RETENTION
     Route: 048
     Dates: start: 20010101
  7. HUMIRA [Suspect]
     Indication: RHEUMATOID ARTHRITIS
     Route: 058
     Dates: start: 20050501
  8. PURAN T4 [Concomitant]
     Indication: HYPOTHYROIDISM
     Route: 048
     Dates: start: 20010101
  9. CALCIUM [Concomitant]
     Indication: BONE DISORDER
     Route: 048
     Dates: start: 20010101
  10. TRAMADOL HYDROCHLORIDE [Suspect]
     Indication: PAIN
     Dates: start: 20110201

REACTIONS (5)
  - CARDIAC DISORDER [None]
  - CONVULSION [None]
  - CARDIOMEGALY [None]
  - DYSPNOEA [None]
  - CARDIAC FAILURE [None]
